FAERS Safety Report 6222551-X (Version None)
Quarter: 2009Q2

REPORT INFORMATION
  Report Type: 
  Country: None (occurrence: None)
  Receive Date: 20090611
  Receipt Date: 20090507
  Transmission Date: 20091009
  Serious: Yes (Other)
  Sender: FDA-Public Use
  Company Number: GB-JNJFOC-20090501957

PATIENT
  Age: 7 Month
  Sex: Female

DRUGS (2)
  1. DAKTACORT [Suspect]
     Route: 061
  2. DAKTACORT [Suspect]
     Indication: CANDIDA NAPPY RASH
     Route: 061

REACTIONS (1)
  - DERMATITIS BULLOUS [None]
